FAERS Safety Report 17284169 (Version 1)
Quarter: 2020Q1

REPORT INFORMATION
  Report Type: Report from Study
  Country: JP (occurrence: JP)
  Receive Date: 20200117
  Receipt Date: 20200117
  Transmission Date: 20200409
  Serious: Yes (Death)
  Sender: FDA-Public Use
  Company Number: PHHY2019JP029844

PATIENT
  Age: 89 Year
  Sex: Male
  Weight: 55.8 kg

DRUGS (2)
  1. ZOMETA [Suspect]
     Active Substance: ZOLEDRONIC ACID
     Indication: PRODUCT USED FOR UNKNOWN INDICATION
     Dosage: 5 MG, UNK
     Route: 042
     Dates: start: 20171030
  2. ZOMETA [Suspect]
     Active Substance: ZOLEDRONIC ACID
     Dosage: 5 MG, UNK
     Route: 042
     Dates: start: 20181102

REACTIONS (3)
  - Jaundice cholestatic [Fatal]
  - Multiple organ dysfunction syndrome [Fatal]
  - Weight decreased [Fatal]

NARRATIVE: CASE EVENT DATE: 20171130
